FAERS Safety Report 12705937 (Version 1)
Quarter: 2016Q3

REPORT INFORMATION
  Report Type: Spontaneous
  Country: US (occurrence: US)
  Receive Date: 20160901
  Receipt Date: 20160901
  Transmission Date: 20161109
  Serious: Yes (Other)
  Sender: FDA-Public Use
  Company Number: US-AMGEN-USASP2016112067

PATIENT
  Age: 84 Year
  Sex: Female

DRUGS (8)
  1. TYLENOL [Concomitant]
     Active Substance: ACETAMINOPHEN
     Dosage: UNK
  2. PROLIA [Suspect]
     Active Substance: DENOSUMAB
     Indication: OSTEOPOROSIS
     Dosage: 60 MG/ML, Q6MO
     Route: 058
     Dates: start: 201602, end: 201602
  3. MECLIZINE [Concomitant]
     Active Substance: MECLIZINE HYDROCHLORIDE
  4. CALCIUM D [Concomitant]
     Active Substance: CALCIUM\VITAMIN D
  5. VALIUM [Concomitant]
     Active Substance: DIAZEPAM
  6. MULTIVITAMIN [Concomitant]
     Active Substance: VITAMINS
  7. ELIQUIS [Concomitant]
     Active Substance: APIXABAN
  8. PROBIOTIC [Concomitant]
     Active Substance: PROBIOTICS NOS

REACTIONS (10)
  - Depression [Unknown]
  - Discomfort [Unknown]
  - Gastrointestinal disorder [Unknown]
  - Arthralgia [Unknown]
  - Heart valve incompetence [Unknown]
  - Cardiac failure [Unknown]
  - Weight decreased [Unknown]
  - Activities of daily living impaired [Unknown]
  - Bone pain [Unknown]
  - Constipation [Unknown]

NARRATIVE: CASE EVENT DATE: 201602
